FAERS Safety Report 11259616 (Version 4)
Quarter: 2015Q3

REPORT INFORMATION
  Report Type: Spontaneous
  Country: US (occurrence: US)
  Receive Date: 20150710
  Receipt Date: 20150716
  Transmission Date: 20151125
  Serious: Yes (Other)
  Sender: FDA-Public Use
  Company Number: US-TEVA-576386ACC

PATIENT
  Age: 51 Year
  Sex: Female
  Weight: 68.55 kg

DRUGS (1)
  1. PARAGARD T 380A [Suspect]
     Active Substance: COPPER
     Indication: CONTRACEPTION
     Dosage: 6 YEARS AGO
     Route: 015
     Dates: start: 20150520

REACTIONS (3)
  - Device dislocation [Recovered/Resolved]
  - Medical device complication [Recovered/Resolved]
  - Pelvic fluid collection [Unknown]

NARRATIVE: CASE EVENT DATE: 20150520
